FAERS Safety Report 20079941 (Version 1)
Quarter: 2021Q4

REPORT INFORMATION
  Report Type: Spontaneous
  Country: US (occurrence: US)
  Receive Date: 20211117
  Receipt Date: 20211117
  Transmission Date: 20220303
  Serious: Yes (Other)
  Sender: FDA-Public Use
  Company Number: US-SERVIER-S21012707

PATIENT

DRUGS (2)
  1. ONCASPAR [Suspect]
     Active Substance: PEGASPARGASE
     Indication: Acute lymphocytic leukaemia
     Dosage: 1875 IU, ONE DOSE
     Route: 042
     Dates: start: 20210928, end: 20210928
  2. ONCASPAR [Suspect]
     Active Substance: PEGASPARGASE
     Dosage: 1875 IU, ONE DOSE
     Route: 042
     Dates: start: 20211101, end: 20211101

REACTIONS (2)
  - Hypersensitivity [Recovered/Resolved]
  - Hypersensitivity [Recovered/Resolved]

NARRATIVE: CASE EVENT DATE: 20210928
